FAERS Safety Report 14596892 (Version 1)
Quarter: 2018Q1

REPORT INFORMATION
  Report Type: Spontaneous
  Country: US (occurrence: US)
  Receive Date: 20180304
  Receipt Date: 20180304
  Transmission Date: 20180509
  Serious: No
  Sender: FDA-Public Use
  Company Number: US-ASTRAZENECA-2018SE15793

PATIENT
  Age: 719 Month
  Sex: Female
  Weight: 90.7 kg

DRUGS (2)
  1. ALBUTEROL. [Concomitant]
     Active Substance: ALBUTEROL
     Indication: COUGH
     Route: 065
     Dates: start: 201801
  2. SYMBICORT [Suspect]
     Active Substance: BUDESONIDE\FORMOTEROL FUMARATE DIHYDRATE
     Indication: COUGH
     Dosage: 160/4.5MCG 1 INHALATION TWO TIMES A DAY
     Route: 055
     Dates: start: 20180118

REACTIONS (5)
  - Contusion [Recovered/Resolved]
  - Lip dry [Unknown]
  - Wrong technique in device usage process [Unknown]
  - Off label use [Unknown]
  - Product use issue [Unknown]

NARRATIVE: CASE EVENT DATE: 201801
